FAERS Safety Report 13503425 (Version 1)
Quarter: 2017Q2

REPORT INFORMATION
  Report Type: Spontaneous
  Country: US (occurrence: US)
  Receive Date: 20170502
  Receipt Date: 20170502
  Transmission Date: 20170830
  Serious: Yes (Other)
  Sender: FDA-Public Use
  Company Number: None

PATIENT
  Age: 31 Year
  Sex: Male

DRUGS (1)
  1. BUPRENORPHINE/NALOXONE TAB [Suspect]
     Active Substance: BUPRENORPHINE\NALOXONE
     Indication: DRUG USE DISORDER
     Dosage: 8MG/2MG BID SL/ORAL
     Route: 060

REACTIONS (4)
  - Swollen tongue [None]
  - Stomatitis [None]
  - Headache [None]
  - Tongue blistering [None]

NARRATIVE: CASE EVENT DATE: 20120208
